FAERS Safety Report 11835332 (Version 1)
Quarter: 2015Q4

REPORT INFORMATION
  Report Type: Spontaneous
  Country: US (occurrence: None)
  Receive Date: 20151214
  Receipt Date: 20151214
  Transmission Date: 20160305
  Serious: Yes (Death)
  Sender: FDA-Public Use
  Company Number: None

PATIENT
  Age: 49 Year
  Sex: Male
  Weight: 95.71 kg

DRUGS (8)
  1. MIRTAZAPINE 15 [Suspect]
     Active Substance: MIRTAZAPINE
     Indication: SLEEP DISORDER
     Route: 048
  2. HYDROCODONE [Concomitant]
     Active Substance: HYDROCODONE
  3. FISH OIL [Concomitant]
     Active Substance: FISH OIL
  4. MIRTAZAPINE 15 [Suspect]
     Active Substance: MIRTAZAPINE
     Indication: DEPRESSION
     Route: 048
  5. IBUPROFEN. [Concomitant]
     Active Substance: IBUPROFEN
  6. GABAPENTIN 800MG QPM [Suspect]
     Active Substance: GABAPENTIN
     Indication: PAIN IN EXTREMITY
     Route: 048
  7. ZOLOFT [Concomitant]
     Active Substance: SERTRALINE HYDROCHLORIDE
  8. REMERON [Concomitant]
     Active Substance: MIRTAZAPINE

REACTIONS (1)
  - Completed suicide [None]
